FAERS Safety Report 19990758 (Version 3)
Quarter: 2022Q1

REPORT INFORMATION
  Report Type: Report from Study
  Country: US (occurrence: US)
  Receive Date: 20211025
  Receipt Date: 20220209
  Transmission Date: 20220423
  Serious: No
  Sender: FDA-Public Use
  Company Number: US-NOVARTISTESTPH-NVSC2021US242825

PATIENT
  Sex: Female

DRUGS (1)
  1. COSENTYX [Suspect]
     Active Substance: SECUKINUMAB
     Indication: Psoriasis
     Dosage: 300 MG, QMO(WEEK 0, 1, 2, 3, 4 AND EVERY 4 WEEKS)
     Route: 058

REACTIONS (2)
  - Injection site pain [Unknown]
  - Injection site bruising [Unknown]
